FAERS Safety Report 8370878-8 (Version None)
Quarter: 2012Q2

REPORT INFORMATION
  Report Type: 
  Country: None (occurrence: None)
  Receive Date: 20120518
  Receipt Date: 20110608
  Transmission Date: 20120825
  Serious: No
  Sender: FDA-Public Use
  Company Number: US-ASTRAZENECA-2011SE46340

PATIENT
  Age: 62 Year
  Sex: Male

DRUGS (2)
  1. CALCIUM CARBONATE [Concomitant]
     Dosage: UNK DOSE, AS NEEDED
     Route: 048
  2. PRILOSEC OTC [Suspect]
     Indication: DYSPEPSIA
     Route: 048

REACTIONS (5)
  - DRUG INEFFECTIVE [None]
  - MALAISE [None]
  - VOMITING [None]
  - NAUSEA [None]
  - INCORRECT DRUG ADMINISTRATION DURATION [None]
